FAERS Safety Report 7195486-6 (Version None)
Quarter: 2010Q4

REPORT INFORMATION
  Report Type: 
  Country: None (occurrence: None)
  Receive Date: 20101223
  Receipt Date: 20101004
  Transmission Date: 20110411
  Serious: No
  Sender: FDA-Public Use
  Company Number: US-AMGEN-KDL442979

PATIENT

DRUGS (4)
  1. ENBREL [Suspect]
     Indication: PRODUCT USED FOR UNKNOWN INDICATION
     Dosage: 50 MG, QWK
     Route: 058
     Dates: start: 20100903
  2. HYDROCODONE BITARTRATE [Concomitant]
     Dosage: UNK UNK, UNK
  3. CYCLOBENZAPRINE [Concomitant]
     Dosage: 5 MG, UNK
  4. DICLOFENAC [Concomitant]
     Dosage: 25 MG, UNK

REACTIONS (5)
  - INJECTION SITE ERYTHEMA [None]
  - INJECTION SITE PAIN [None]
  - INJECTION SITE REACTION [None]
  - PRURITUS [None]
  - SWELLING [None]
